FAERS Safety Report 7632035-X (Version None)
Quarter: 2011Q3

REPORT INFORMATION
  Report Type: 
  Country: None (occurrence: None)
  Receive Date: 20110701
  Receipt Date: 20110415
  Transmission Date: 20111222
  Serious: Yes (Other)
  Sender: FDA-Public Use
  Company Number: 7054366

PATIENT
  Age: 30 Year
  Sex: Male

DRUGS (1)
  1. REBIF [Suspect]
     Indication: PRODUCT USED FOR UNKNOWN INDICATION
     Dosage: 44 MCG, 3 IN 1 WK, SUBCUTANEOUS
     Route: 058
     Dates: start: 20110201

REACTIONS (6)
  - RETINAL EXUDATES [None]
  - CHILLS [None]
  - PAIN [None]
  - INJECTION SITE PAIN [None]
  - HYPOAESTHESIA [None]
  - VISION BLURRED [None]
